FAERS Safety Report 20611330 (Version 1)
Quarter: 2022Q1

REPORT INFORMATION
  Report Type: Spontaneous
  Country: ES (occurrence: ES)
  Receive Date: 20220318
  Receipt Date: 20220318
  Transmission Date: 20220423
  Serious: Yes (Hospitalization)
  Sender: FDA-Public Use
  Company Number: None

PATIENT
  Age: 72 Year
  Sex: Female
  Weight: 48 kg

DRUGS (2)
  1. KISQALI [Suspect]
     Active Substance: RIBOCICLIB
     Indication: Breast cancer stage IV
     Dosage: 600 MG/24H
     Route: 048
     Dates: start: 20210610, end: 20210630
  2. LETROZOLE [Suspect]
     Active Substance: LETROZOLE
     Indication: Breast cancer stage IV
     Dosage: 2.5 MG, QD (2,5 MG/24H)
     Route: 048
     Dates: start: 20210610

REACTIONS (1)
  - Cardiac failure [Recovered/Resolved]

NARRATIVE: CASE EVENT DATE: 20210625
